FAERS Safety Report 8303474-9 (Version None)
Quarter: 2012Q2

REPORT INFORMATION
  Report Type: 
  Country: None (occurrence: None)
  Receive Date: 20120423
  Receipt Date: 20120421
  Transmission Date: 20120825
  Serious: No
  Sender: FDA-Public Use
  Company Number: US-PFIZER INC-2012098722

PATIENT
  Sex: Female
  Weight: 84.354 kg

DRUGS (6)
  1. CHANTIX [Suspect]
     Dosage: UNK
     Route: 048
     Dates: start: 20120101
  2. LYRICA [Concomitant]
     Indication: NEUROPATHY PERIPHERAL
     Dosage: 75 MG, 2X/DAY
     Route: 048
  3. LYRICA [Concomitant]
     Indication: FIBROMYALGIA
  4. LEVOTHYROXINE [Concomitant]
     Indication: THYROID DISORDER
     Dosage: 75 UG, DAILY
  5. ZOLOFT [Concomitant]
     Indication: DEPRESSION
     Dosage: 50 MG,DAILY
  6. CHANTIX [Suspect]
     Indication: SMOKING CESSATION THERAPY
     Dosage: 0.5 MG, DAILY
     Route: 048
     Dates: start: 20120101

REACTIONS (1)
  - DIARRHOEA [None]
